FAERS Safety Report 4825485-8 (Version None)
Quarter: 2005Q3

REPORT INFORMATION
  Report Type: 
  Country: None (occurrence: None)
  Receive Date: 20050916
  Receipt Date: 20050916
  Transmission Date: 20060218
  Serious: Yes (Other)
  Sender: FDA-Public Use
  Company Number: None

PATIENT
  Age: 65 Year
  Sex: Male
  Weight: 90.7194 kg

DRUGS (7)
  1. CYCLOSPORINE [Suspect]
     Indication: GRAFT VERSUS HOST DISEASE
     Dosage: 1 ML PO Q12H
     Route: 048
     Dates: start: 20050915, end: 20050916
  2. PREDNISONE [Concomitant]
  3. RESTASIS [Concomitant]
  4. PROCARDIA [Concomitant]
  5. PROTONIX [Concomitant]
  6. LOPRESSOR [Concomitant]
  7. DIFLUCAN [Concomitant]

REACTIONS (4)
  - AGEUSIA [None]
  - DYSGEUSIA [None]
  - GLOSSODYNIA [None]
  - THROAT IRRITATION [None]
